FAERS Safety Report 4660915-6 (Version None)
Quarter: 2005Q2

REPORT INFORMATION
  Report Type: 
  Country: None (occurrence: None)
  Receive Date: 20050511
  Receipt Date: 20050428
  Transmission Date: 20051028
  Serious: Yes (Other)
  Sender: FDA-Public Use
  Company Number: 2005068552

PATIENT
  Age: 42 Year
  Sex: Female
  Weight: 49.8957 kg

DRUGS (4)
  1. BENADRYL [Suspect]
     Indication: RASH
     Dates: start: 20050423
  2. LISTERINE                       (MENTHOL, METHYL SALICYLATE, EUCALYPTO [Suspect]
     Indication: DENTAL DISORDER PROPHYLAXIS
     Dosage: 1 CAPFUL HS, ORAL TOPICAL
     Route: 061
     Dates: start: 20050101, end: 20050427
  3. PEPCID AC [Suspect]
     Indication: RASH
     Dates: start: 20050423
  4. NASORAL [Concomitant]

REACTIONS (4)
  - EYE PRURITUS [None]
  - RASH ERYTHEMATOUS [None]
  - RASH GENERALISED [None]
  - RASH MACULO-PAPULAR [None]
